FAERS Safety Report 20933062 (Version 1)
Quarter: 2022Q2

REPORT INFORMATION
  Report Type: Spontaneous
  Country: US (occurrence: US)
  Receive Date: 20220608
  Receipt Date: 20220608
  Transmission Date: 20220721
  Serious: No
  Sender: FDA-Public Use
  Company Number: US-REGENERON PHARMACEUTICALS, INC.-2022-43099

PATIENT
  Sex: Female

DRUGS (5)
  1. EYLEA [Suspect]
     Active Substance: AFLIBERCEPT
     Indication: Neovascular age-related macular degeneration
     Dosage: 2 MG, UNK, FIRST DOSE
     Route: 031
     Dates: start: 20210922, end: 20210922
  2. EYLEA [Suspect]
     Active Substance: AFLIBERCEPT
     Dosage: 2 MG, RIGHT EYE, SECOND DOSE
     Route: 031
     Dates: start: 20211022, end: 20211022
  3. EYLEA [Suspect]
     Active Substance: AFLIBERCEPT
     Dosage: 2 MG, RIGHT EYE, THIRD DOSE
     Route: 031
     Dates: start: 20211122, end: 20211122
  4. EYLEA [Suspect]
     Active Substance: AFLIBERCEPT
     Dosage: 2 MG, RIGHT EYE, FOURTH DOSE
     Route: 031
     Dates: start: 20220127, end: 20220127
  5. PAXIL                              /00500401/ [Concomitant]
     Indication: Anxiety
     Dosage: 20 MG DAILY BY MOUTH
     Route: 048

REACTIONS (11)
  - Therapy interrupted [Unknown]
  - Headache [Unknown]
  - Dysphonia [Unknown]
  - Nausea [Unknown]
  - Dyspnoea [Unknown]
  - Eye pain [Unknown]
  - Vision blurred [Unknown]
  - Lacrimation increased [Unknown]
  - Urticaria [Unknown]
  - Rash [Unknown]
  - Rash pruritic [Unknown]

NARRATIVE: CASE EVENT DATE: 20210922
